FAERS Safety Report 15683157 (Version 2)
Quarter: 2018Q4

REPORT INFORMATION
  Report Type: Report from Study
  Country: JP (occurrence: JP)
  Receive Date: 20181204
  Receipt Date: 20181228
  Transmission Date: 20190205
  Serious: Yes (Other)
  Sender: FDA-Public Use
  Company Number: JP-CONCORDIA PHARMACEUTICALS INC.-GSH201812-004048

PATIENT
  Age: 38 Year
  Sex: Male
  Weight: 55 kg

DRUGS (16)
  1. WARFARIN [Concomitant]
     Active Substance: WARFARIN
     Indication: CHRONIC CUTANEOUS LUPUS ERYTHEMATOSUS
  2. MIYA-BM [Concomitant]
     Active Substance: CLOSTRIDIUM BUTYRICUM SPORES STRAIN M-55
     Indication: CHRONIC CUTANEOUS LUPUS ERYTHEMATOSUS
  3. PREDNISOLONE. [Concomitant]
     Active Substance: PREDNISOLONE
     Indication: CHRONIC CUTANEOUS LUPUS ERYTHEMATOSUS
  4. NEXIUM [Concomitant]
     Active Substance: ESOMEPRAZOLE MAGNESIUM
     Indication: CHRONIC CUTANEOUS LUPUS ERYTHEMATOSUS
  5. ONEALFA [Concomitant]
     Active Substance: ALFACALCIDOL
     Indication: CHRONIC CUTANEOUS LUPUS ERYTHEMATOSUS
  6. ONEALFA [Concomitant]
     Active Substance: ALFACALCIDOL
     Indication: CUTANEOUS LUPUS ERYTHEMATOSUS
  7. WARFARIN [Concomitant]
     Active Substance: WARFARIN
     Indication: CUTANEOUS LUPUS ERYTHEMATOSUS
  8. CELLCEPT [Concomitant]
     Active Substance: MYCOPHENOLATE MOFETIL\MYCOPHENOLATE MOFETIL HYDROCHLORIDE
     Indication: CHRONIC CUTANEOUS LUPUS ERYTHEMATOSUS
  9. PLAQUENIL [Suspect]
     Active Substance: HYDROXYCHLOROQUINE SULFATE
     Indication: CHRONIC CUTANEOUS LUPUS ERYTHEMATOSUS
     Dosage: 200 MG/DAY AND 400 MG/DAY ALTERNATELY
     Route: 048
     Dates: start: 20160908, end: 20161003
  10. CELLCEPT [Concomitant]
     Active Substance: MYCOPHENOLATE MOFETIL\MYCOPHENOLATE MOFETIL HYDROCHLORIDE
     Indication: CUTANEOUS LUPUS ERYTHEMATOSUS
  11. MIYA-BM [Concomitant]
     Active Substance: CLOSTRIDIUM BUTYRICUM SPORES STRAIN M-55
     Indication: CUTANEOUS LUPUS ERYTHEMATOSUS
  12. PLAQUENIL [Suspect]
     Active Substance: HYDROXYCHLOROQUINE SULFATE
     Indication: CUTANEOUS LUPUS ERYTHEMATOSUS
     Dosage: 200 MG/DAY AND 400 MG/DAY ALTERNATELY
     Route: 048
     Dates: start: 20160908, end: 20161003
  13. PREDONINE [Concomitant]
     Active Substance: PREDNISOLONE
     Indication: CHRONIC CUTANEOUS LUPUS ERYTHEMATOSUS
  14. PREDONINE [Concomitant]
     Active Substance: PREDNISOLONE
     Indication: CUTANEOUS LUPUS ERYTHEMATOSUS
  15. NEXIUM [Concomitant]
     Active Substance: ESOMEPRAZOLE MAGNESIUM
     Indication: CUTANEOUS LUPUS ERYTHEMATOSUS
  16. PREDNISOLONE. [Concomitant]
     Active Substance: PREDNISOLONE
     Indication: CUTANEOUS LUPUS ERYTHEMATOSUS

REACTIONS (1)
  - Toxic skin eruption [Recovered/Resolved]

NARRATIVE: CASE EVENT DATE: 20161002
